FAERS Safety Report 13639333 (Version 1)
Quarter: 2017Q2

REPORT INFORMATION
  Report Type: Spontaneous
  Country: US (occurrence: US)
  Receive Date: 20170609
  Receipt Date: 20170609
  Transmission Date: 20170830
  Serious: No
  Sender: FDA-Public Use
  Company Number: US-ROCHE-716515

PATIENT
  Sex: Male

DRUGS (4)
  1. FENTANYL. [Interacting]
     Active Substance: FENTANYL
     Dosage: BATCH/LOT NUMBER: 284723A
     Route: 062
  2. FENTANYL. [Interacting]
     Active Substance: FENTANYL
     Dosage: LOT NUMBER UNKNOWN
     Route: 062
     Dates: start: 2009, end: 20100707
  3. KLONOPIN [Suspect]
     Active Substance: CLONAZEPAM
     Indication: DEPRESSION
     Route: 048
  4. FENTANYL. [Interacting]
     Active Substance: FENTANYL
     Indication: ARTHRITIS
     Dosage: DRUG: FENTANYL-50, LOT NUMBER UNCONFIRMED
     Route: 062
     Dates: start: 2007, end: 2009

REACTIONS (6)
  - Dyspnoea [Recovered/Resolved]
  - Hypoacusis [Not Recovered/Not Resolved]
  - Erectile dysfunction [Not Recovered/Not Resolved]
  - Visual impairment [Not Recovered/Not Resolved]
  - Vision blurred [Not Recovered/Not Resolved]
  - Drug interaction [Unknown]
